FAERS Safety Report 11167312 (Version 1)
Quarter: 2015Q2

REPORT INFORMATION
  Report Type: Report from Study
  Country: CA (occurrence: CA)
  Receive Date: 20150605
  Receipt Date: 20150605
  Transmission Date: 20150821
  Serious: Yes (Other)
  Sender: FDA-Public Use
  Company Number: CA-BIOGENIDEC-2015BI074464

PATIENT
  Age: 58 Year
  Sex: Female
  Weight: 50 kg

DRUGS (3)
  1. OXAZEPAM. [Concomitant]
     Active Substance: OXAZEPAM
  2. ATIVAN [Concomitant]
     Active Substance: LORAZEPAM
     Indication: PREMEDICATION
  3. TYSABRI [Suspect]
     Active Substance: NATALIZUMAB
     Indication: RELAPSING-REMITTING MULTIPLE SCLEROSIS
     Route: 042
     Dates: start: 20140715

REACTIONS (15)
  - Erythema [Unknown]
  - Muscle spasms [Unknown]
  - Blood pressure increased [Unknown]
  - General physical health deterioration [Unknown]
  - Heart rate increased [Unknown]
  - Gait disturbance [Unknown]
  - Somnolence [Unknown]
  - Dysarthria [Unknown]
  - Agitation [Unknown]
  - Fatigue [Unknown]
  - Asthenia [Unknown]
  - Dyspnoea [Unknown]
  - Dysphonia [Unknown]
  - Muscle contractions involuntary [Unknown]
  - Pain [Unknown]

NARRATIVE: CASE EVENT DATE: 20150526
